FAERS Safety Report 7617565-9 (Version None)
Quarter: 2011Q3

REPORT INFORMATION
  Report Type: 
  Country: None (occurrence: None)
  Receive Date: 20110718
  Receipt Date: 20110705
  Transmission Date: 20111222
  Serious: Yes (Hospitalization)
  Sender: FDA-Public Use
  Company Number: CA-JNJFOC-20110702668

PATIENT
  Sex: Male
  Weight: 66.6 kg

DRUGS (4)
  1. REMICADE [Suspect]
     Indication: CROHN'S DISEASE
     Dosage: 2ND INFUSION
     Route: 042
     Dates: start: 20110705
  2. ALTACE [Concomitant]
     Indication: BLOOD PRESSURE INCREASED
  3. REMICADE [Suspect]
     Dosage: 1ST INFUSION WHILE HOSPITALIZED
     Route: 042
     Dates: start: 20110401
  4. AZATHIOPRINE [Concomitant]
     Indication: CROHN'S DISEASE

REACTIONS (4)
  - NAUSEA [None]
  - VOMITING [None]
  - CROHN'S DISEASE [None]
  - WEIGHT DECREASED [None]
